FAERS Safety Report 9656484 (Version 1)
Quarter: 2013Q4

REPORT INFORMATION
  Report Type: Spontaneous
  Country: US (occurrence: None)
  Receive Date: 20131029
  Receipt Date: 20131029
  Transmission Date: 20140711
  Serious: Yes (Death)
  Sender: FDA-Public Use
  Company Number: None

PATIENT
  Age: 20 Year
  Sex: Female
  Weight: 46.8 kg

DRUGS (14)
  1. ZANAMIVIR [Suspect]
     Indication: INFLUENZA
     Route: 042
     Dates: start: 20131012, end: 20131018
  2. MICAFUNGIN [Concomitant]
  3. CEFEPIME [Concomitant]
  4. ACYCLOVIR [Concomitant]
  5. VORICONAZOLE [Concomitant]
  6. CISATRACURIUM [Concomitant]
  7. INSULIN [Concomitant]
  8. MIDAZOLAM [Concomitant]
  9. MORPHINE [Concomitant]
  10. AMLODIPINE [Concomitant]
  11. DESOGEN [Concomitant]
  12. FLUTICASONE [Concomitant]
  13. HYDROCORTISONE [Concomitant]
  14. TRIMCINOLONE [Concomitant]

REACTIONS (1)
  - Respiratory failure [None]
